FAERS Safety Report 11382294 (Version 1)
Quarter: 2015Q3

REPORT INFORMATION
  Report Type: Spontaneous
  Country: US (occurrence: US)
  Receive Date: 20150811
  Receipt Date: 20150811
  Transmission Date: 20151125
  Serious: No
  Sender: FDA-Public Use
  Company Number: US-ELI_LILLY_AND_COMPANY-US201005004186

PATIENT
  Age: 45 Year
  Sex: Female

DRUGS (2)
  1. CIALIS [Suspect]
     Active Substance: TADALAFIL
     Indication: RAYNAUD^S PHENOMENON
     Dosage: 5 MG, UNK
  2. CIALIS [Suspect]
     Active Substance: TADALAFIL
     Dosage: 30 MG, UNK

REACTIONS (2)
  - Prescribed overdose [Unknown]
  - Off label use [Unknown]
